FAERS Safety Report 20261731 (Version 2)
Quarter: 2022Q1

REPORT INFORMATION
  Report Type: Spontaneous
  Country: ES (occurrence: ES)
  Receive Date: 20211231
  Receipt Date: 20220112
  Transmission Date: 20220423
  Serious: Yes (Life-Threatening, Hospitalization)
  Sender: FDA-Public Use
  Company Number: ES-TEVA-2021-ES-1993027

PATIENT
  Sex: Female

DRUGS (19)
  1. DOXORUBICIN [Suspect]
     Active Substance: DOXORUBICIN
     Indication: Thymoma
     Dosage: 394MG/M2 TOTAL DOSE
     Route: 065
  2. CISPLATIN [Suspect]
     Active Substance: CISPLATIN
     Indication: Thymoma
     Route: 065
  3. CYCLOPHOSPHAMIDE [Suspect]
     Active Substance: CYCLOPHOSPHAMIDE
     Indication: Thymoma
     Route: 065
  4. PEMBROLIZUMAB [Suspect]
     Active Substance: PEMBROLIZUMAB
     Indication: Thymoma
     Dosage: 2MG/KG ONCE IN 3 WEEKS
     Route: 065
     Dates: start: 202010
  5. ISOPROTERENOL [Suspect]
     Active Substance: ISOPROTERENOL
     Indication: Myocarditis
     Route: 042
  6. METHYLPREDNISOLONE [Suspect]
     Active Substance: METHYLPREDNISOLONE
     Indication: Myocarditis
     Dosage: 2MG/KG
     Route: 065
  7. METHYLPREDNISOLONE [Suspect]
     Active Substance: METHYLPREDNISOLONE
     Dosage: 1 GRAM DAILY; RECEIVED FOR 5 DAYS
     Route: 042
  8. INFLIXIMAB [Suspect]
     Active Substance: INFLIXIMAB
     Indication: Myocarditis
     Dosage: 5MG/KG
     Route: 065
  9. AMIODARONE [Suspect]
     Active Substance: AMIODARONE
     Indication: Cardiogenic shock
     Route: 042
  10. NOREPINEPHRINE [Suspect]
     Active Substance: NOREPINEPHRINE
     Indication: Hypotension
     Route: 065
  11. NOREPINEPHRINE [Suspect]
     Active Substance: NOREPINEPHRINE
     Indication: Oliguria
  12. NOREPINEPHRINE [Suspect]
     Active Substance: NOREPINEPHRINE
     Indication: Renal failure
  13. DOBUTAMINE [Suspect]
     Active Substance: DOBUTAMINE HYDROCHLORIDE
     Indication: Hypotension
     Route: 065
  14. DOBUTAMINE [Suspect]
     Active Substance: DOBUTAMINE HYDROCHLORIDE
     Indication: Renal failure
  15. DOBUTAMINE [Suspect]
     Active Substance: DOBUTAMINE HYDROCHLORIDE
     Indication: Oliguria
  16. THYMOCYTE IMMUNE GLOBULIN NOS [Suspect]
     Active Substance: THYMOCYTE IMMUNE GLOBULIN NOS
     Indication: Hypotension
     Route: 042
  17. THYMOCYTE IMMUNE GLOBULIN NOS [Suspect]
     Active Substance: THYMOCYTE IMMUNE GLOBULIN NOS
     Indication: Renal failure
  18. THYMOCYTE IMMUNE GLOBULIN NOS [Suspect]
     Active Substance: THYMOCYTE IMMUNE GLOBULIN NOS
     Indication: Oliguria
  19. PYRIDOSTIGMINE [Suspect]
     Active Substance: PYRIDOSTIGMINE
     Indication: Myasthenia gravis
     Route: 065

REACTIONS (10)
  - Atrioventricular block complete [Unknown]
  - Myocarditis [Unknown]
  - Pleural effusion [Unknown]
  - Myasthenia gravis [Unknown]
  - Drug ineffective [Unknown]
  - Hypotension [Unknown]
  - Renal failure [Unknown]
  - Oliguria [Unknown]
  - Cardiogenic shock [Unknown]
  - Respiratory failure [Unknown]
